FAERS Safety Report 17411939 (Version 4)
Quarter: 2020Q1

REPORT INFORMATION
  Report Type: Report from Study
  Country: PL (occurrence: PL)
  Receive Date: 20200213
  Receipt Date: 20200327
  Transmission Date: 20200409
  Serious: Yes (Death, Hospitalization)
  Sender: FDA-Public Use
  Company Number: PL-ROCHE-2544683

PATIENT
  Age: 60 Year
  Sex: Female
  Weight: 61 kg

DRUGS (3)
  1. ATEZOLIZUMAB. [Suspect]
     Active Substance: ATEZOLIZUMAB
     Indication: HEPATOCELLULAR CARCINOMA
     Dosage: THE DATE OF MOST RECENT DOSE OF ATEZOLIZUMAB PRIOR TO EVENT ONSET: 09/DEC/2019.
     Route: 042
     Dates: start: 20191209
  2. UREA. [Concomitant]
     Active Substance: UREA
  3. CABOZANTINIB [Suspect]
     Active Substance: CABOZANTINIB
     Indication: HEPATOCELLULAR CARCINOMA
     Dosage: THE DATE OF MOST RECENT DOSE OF CABOZANTINIB PRIOR TO EVENT ONSET: 29/DEC/2019.
     Route: 048
     Dates: start: 20191209

REACTIONS (4)
  - Jaundice [Not Recovered/Not Resolved]
  - Pancreatic enzymes increased [Fatal]
  - General physical health deterioration [Fatal]
  - Hepatic enzyme increased [Not Recovered/Not Resolved]

NARRATIVE: CASE EVENT DATE: 20191230
